FAERS Safety Report 11886646 (Version 1)
Quarter: 2016Q1

REPORT INFORMATION
  Report Type: Spontaneous
  Country: US (occurrence: US)
  Receive Date: 20160104
  Receipt Date: 20160104
  Transmission Date: 20160526
  Serious: No
  Sender: FDA-Public Use
  Company Number: US-PFIZER INC-2016000703

PATIENT
  Age: 56 Year
  Sex: Male
  Weight: 117.4 kg

DRUGS (4)
  1. LYRICA [Suspect]
     Active Substance: PREGABALIN
     Indication: INFLAMMATION
     Dosage: 150 MG, 1X/DAY
     Dates: start: 2003, end: 201508
  2. CELECOXIB. [Suspect]
     Active Substance: CELECOXIB
     Dosage: 200 MG, ALTERNATE DAY
     Dates: start: 201508
  3. LYRICA [Suspect]
     Active Substance: PREGABALIN
     Dosage: 150 MG, 2X/DAY
     Dates: start: 201508
  4. CELECOXIB. [Suspect]
     Active Substance: CELECOXIB
     Indication: INFLAMMATION
     Dosage: 200 MG, 1X/DAY. 200 MG PILL ONCE A DAY AT NIGHT
     Dates: start: 201503

REACTIONS (5)
  - Eye pain [Recovered/Resolved]
  - Pain in extremity [Recovering/Resolving]
  - Gait disturbance [Unknown]
  - Drug ineffective [Unknown]
  - Headache [Recovered/Resolved]

NARRATIVE: CASE EVENT DATE: 2015
